FAERS Safety Report 6093884-5 (Version None)
Quarter: 2009Q1

REPORT INFORMATION
  Report Type: 
  Country: None (occurrence: None)
  Receive Date: 20090224
  Receipt Date: 20090224
  Transmission Date: 20090719
  Serious: Yes (Other)
  Sender: FDA-Public Use
  Company Number: None

PATIENT
  Age: 35 Year
  Sex: Male

DRUGS (1)
  1. INVEGA [Suspect]
     Dosage: BID

REACTIONS (4)
  - CONDITION AGGRAVATED [None]
  - ILL-DEFINED DISORDER [None]
  - PARAESTHESIA [None]
  - RESTLESSNESS [None]
